FAERS Safety Report 14211469 (Version 2)
Quarter: 2018Q1

REPORT INFORMATION
  Report Type: Spontaneous
  Country: US (occurrence: US)
  Receive Date: 20171121
  Receipt Date: 20180201
  Transmission Date: 20180508
  Serious: Yes (Other)
  Sender: FDA-Public Use
  Company Number: US-BAYER-2017-221074

PATIENT
  Age: 44 Year
  Sex: Male
  Weight: 156.46 kg

DRUGS (5)
  1. OXYCODONE [Concomitant]
     Active Substance: OXYCODONE
     Dosage: UNK
     Dates: start: 2010
  2. VITAMIN B12 [Concomitant]
     Active Substance: CYANOCOBALAMIN
     Dosage: UNK
     Dates: start: 2010
  3. FLAGYL [Suspect]
     Active Substance: METRONIDAZOLE\METRONIDAZOLE HYDROCHLORIDE
     Dosage: UNK
     Dates: start: 2010
  4. CIPRO [Suspect]
     Active Substance: CIPROFLOXACIN HYDROCHLORIDE
     Indication: PRODUCT USED FOR UNKNOWN INDICATION
     Dosage: 500 MG, UNK
     Dates: start: 20100426, end: 20100427
  5. PENICILLIN NOS [Concomitant]
     Active Substance: PENICILLIN
     Dosage: UNK
     Dates: start: 2010

REACTIONS (3)
  - Neuropathy peripheral [None]
  - Renal failure [None]
  - Rash erythematous [None]

NARRATIVE: CASE EVENT DATE: 2010
